FAERS Safety Report 24290835 (Version 3)
Quarter: 2025Q4

REPORT INFORMATION
  Report Type: Report from Study
  Country: JP (occurrence: JP)
  Receive Date: 20240906
  Receipt Date: 20251023
  Transmission Date: 20260118
  Serious: Yes (Hospitalization, Other)
  Sender: UCB
  Company Number: JP-UCBJ-CD202407998UCBPHAPROD

PATIENT
  Age: 57 Year
  Sex: Female
  Weight: 40 kg

DRUGS (16)
  1. ROZANOLIXIZUMAB [Suspect]
     Active Substance: ROZANOLIXIZUMAB
     Indication: Myasthenia gravis
     Dosage: 280 MILLIGRAM, WEEKLY (QW)
     Dates: start: 20240815
  2. PREDNISOLONE [Concomitant]
     Active Substance: PREDNISOLONE
     Indication: Myasthenia gravis
     Dosage: 17.5 MILLIGRAM, ONCE DAILY (QD)
     Dates: end: 20240819
  3. PREDNISOLONE [Concomitant]
     Active Substance: PREDNISOLONE
     Dosage: 17.5 MILLIGRAM, ONCE DAILY (QD)
     Dates: start: 20240902, end: 20241125
  4. PREDNISOLONE [Concomitant]
     Active Substance: PREDNISOLONE
     Dosage: 15 MILLIGRAM, ONCE DAILY (QD)
     Dates: start: 20241126, end: 20250113
  5. PREDNISOLONE [Concomitant]
     Active Substance: PREDNISOLONE
     Dosage: 12.5 MILLIGRAM, ONCE DAILY (QD)
     Dates: start: 20250114, end: 20250128
  6. PREDNISOLONE [Concomitant]
     Active Substance: PREDNISOLONE
     Dosage: 10 MILLIGRAM, ONCE DAILY (QD)
     Dates: start: 20250129, end: 20250521
  7. PREDNISOLONE [Concomitant]
     Active Substance: PREDNISOLONE
     Dosage: 9 MILLIGRAM, ONCE DAILY (QD)
     Dates: start: 20250522, end: 20250604
  8. PREDNISOLONE [Concomitant]
     Active Substance: PREDNISOLONE
     Dosage: 8 MILLIGRAM, ONCE DAILY (QD)
     Dates: start: 20250605, end: 20250606
  9. PREDNISOLONE [Concomitant]
     Active Substance: PREDNISOLONE
     Dosage: 10 MILLIGRAM, ONCE DAILY (QD)
     Dates: start: 20250607, end: 20250723
  10. PREDNISOLONE [Concomitant]
     Active Substance: PREDNISOLONE
     Dosage: 9 MILLIGRAM, ONCE DAILY (QD)
     Dates: start: 20250724
  11. MESTINON [Concomitant]
     Active Substance: PYRIDOSTIGMINE BROMIDE
     Indication: Myasthenia gravis
     Dosage: 180 MILLIGRAM, ONCE DAILY (QD)
     Dates: end: 20240814
  12. MESTINON [Concomitant]
     Active Substance: PYRIDOSTIGMINE BROMIDE
     Dosage: 120 MILLIGRAM, ONCE DAILY (QD)
     Dates: start: 20240815, end: 20240818
  13. MESTINON [Concomitant]
     Active Substance: PYRIDOSTIGMINE BROMIDE
     Dosage: 60 MILLIGRAM, ONCE DAILY (QD)
     Dates: start: 20240819, end: 20240819
  14. PROGRAF [Concomitant]
     Active Substance: TACROLIMUS
     Indication: Myasthenia gravis
     Dosage: 3 MILLIGRAM, ONCE DAILY (QD)
     Dates: end: 20240922
  15. PROGRAF [Concomitant]
     Active Substance: TACROLIMUS
     Dosage: 3 MILLIGRAM, ONCE DAILY (QD)
     Dates: start: 20240927
  16. PREDONINE [Concomitant]
     Active Substance: PREDNISOLONE
     Indication: Myasthenia gravis
     Dosage: 20 MILLIGRAM, ONCE DAILY (QD)
     Dates: start: 20240820, end: 20240901

REACTIONS (2)
  - Myasthenia gravis [Not Recovered/Not Resolved]
  - Hepatic encephalopathy [Recovered/Resolved]

NARRATIVE: CASE EVENT DATE: 20240820
